FAERS Safety Report 8825020 (Version 1)
Quarter: 2012Q4

REPORT INFORMATION
  Report Type: 
  Country: PL (occurrence: PL)
  Receive Date: 20121004
  Receipt Date: 20121004
  Transmission Date: 20130627
  Serious: Yes (Hospitalization)
  Sender: FDA-Public Use
  Company Number: PL-AMGEN-POLCT2012062734

PATIENT
  Age: 70 Year
  Sex: Male
  Weight: 75.5 kg

DRUGS (20)
  1. DARBEPOETIN ALFA [Suspect]
     Indication: NEPHROGENIC ANAEMIA
     Dosage: 15 mug, qwk
     Route: 058
     Dates: start: 20110423
  2. SIMVASTATIN [Concomitant]
     Dosage: 20 mg, UNK
     Dates: start: 20071111
  3. FOLIC ACID [Concomitant]
     Dosage: 10 mg, UNK
     Dates: start: 20080608
  4. VITAMIN B6 [Concomitant]
     Dosage: 150 mg, UNK
     Dates: start: 20080608
  5. DICLOFENAC [Concomitant]
     Dosage: 75 mg, UNK
     Dates: start: 20080304
  6. TRIMETAZIDINE HYDROCHLORIDE [Concomitant]
     Dosage: 35 mg, UNK
     Dates: start: 20100323
  7. FUROSEMIDE [Concomitant]
     Dosage: 160 mg, UNK
     Dates: start: 20100810
  8. ASPIRIN [Concomitant]
     Dosage: 75 mg, UNK
     Dates: start: 20101206
  9. PANTOPRAZOL [Concomitant]
     Dosage: 40 mg, UNK
     Dates: start: 20101214
  10. CAVINTON [Concomitant]
     Dosage: 20 mg, UNK
     Dates: start: 20110111
  11. INSULIN HUMAN [Concomitant]
     Dosage: 20 IU, qd
     Dates: start: 20110111
  12. BISOPROLOL [Concomitant]
     Dosage: 1.25 mg, UNK
     Dates: start: 20110125
  13. RAMIPRIL [Concomitant]
     Dosage: 5 mg, UNK
     Dates: start: 20110604
  14. THIOGAMMA [Concomitant]
     Dosage: 600 mg, UNK
     Dates: start: 20110823
  15. KARBAMAZEPIN [Concomitant]
     Dosage: 400 mg, UNK
     Dates: start: 20110824
  16. TRAZODONE [Concomitant]
     Dosage: 25 mg, UNK
     Dates: start: 20110830
  17. PENTOXYFYLLINE [Concomitant]
     Dosage: 600 mg, UNK
     Dates: start: 20120126
  18. TRAMADOL [Concomitant]
     Dosage: 35 mg, UNK
     Dates: start: 20120301
  19. PARACETAMOL [Concomitant]
     Dosage: 300 mg, UNK
     Dates: start: 20120301
  20. NEOMYCINE [Concomitant]
     Dosage: UNK
     Route: 061
     Dates: start: 20120419

REACTIONS (1)
  - Gastroenteritis [Unknown]
